FAERS Safety Report 6774830-5 (Version None)
Quarter: 2010Q2

REPORT INFORMATION
  Report Type: 
  Country: None (occurrence: None)
  Receive Date: 20100616
  Receipt Date: 20100616
  Transmission Date: 20101027
  Serious: Yes (Other)
  Sender: FDA-Public Use
  Company Number: None

PATIENT
  Age: 27 Year
  Sex: Female
  Weight: 50.3493 kg

DRUGS (1)
  1. LORAZEPAM [Suspect]
     Indication: PANIC ATTACK
     Dosage: ONE PILL 2X DAILY AS NEEDED PO
     Route: 048
     Dates: start: 20100610, end: 20100611

REACTIONS (6)
  - ANGER [None]
  - ANXIETY [None]
  - CRYING [None]
  - DEPRESSED MOOD [None]
  - DEPRESSION [None]
  - FRUSTRATION [None]
